FAERS Safety Report 21216318 (Version 1)
Quarter: 2022Q3

REPORT INFORMATION
  Report Type: Spontaneous
  Country: US (occurrence: US)
  Receive Date: 20220816
  Receipt Date: 20220816
  Transmission Date: 20221027
  Serious: No
  Sender: FDA-Public Use
  Company Number: US-BRISTOL-MYERS SQUIBB COMPANY-2022-090594

PATIENT
  Age: 74 Year
  Sex: Female
  Weight: 75.296 kg

DRUGS (1)
  1. REVLIMID [Suspect]
     Active Substance: LENALIDOMIDE
     Indication: Plasma cell myeloma
     Dosage: 10MG M,W,+F
     Route: 048
     Dates: end: 20220715

REACTIONS (1)
  - Full blood count abnormal [Recovering/Resolving]
